FAERS Safety Report 24995397 (Version 1)
Quarter: 2025Q1

REPORT INFORMATION
  Report Type: Report from Study
  Country: IN (occurrence: IN)
  Receive Date: 20250221
  Receipt Date: 20250221
  Transmission Date: 20250409
  Serious: Yes (Death, Hospitalization)
  Sender: ROCHE
  Company Number: IN-ROCHE-10000178397

PATIENT
  Age: 77 Year
  Sex: Male

DRUGS (1)
  1. TECENTRIQ [Suspect]
     Active Substance: ATEZOLIZUMAB
     Indication: Lung cancer metastatic
     Route: 040
     Dates: start: 20241009

REACTIONS (4)
  - Pneumonia viral [Unknown]
  - General physical health deterioration [Fatal]
  - Disease progression [Fatal]
  - Ill-defined disorder [Fatal]

NARRATIVE: CASE EVENT DATE: 20250218
